FAERS Safety Report 6081706-8 (Version None)
Quarter: 2009Q1

REPORT INFORMATION
  Report Type: 
  Country: None (occurrence: None)
  Receive Date: 20090218
  Receipt Date: 20090206
  Transmission Date: 20090719
  Serious: Yes (Death, Life-Threatening, Hospitalization)
  Sender: FDA-Public Use
  Company Number: FR-PFIZER INC-2009154233

PATIENT

DRUGS (4)
  1. SOMATROPIN [Suspect]
     Indication: HYPOPITUITARISM
     Dosage: 0.2 MG, 1X/DAY
     Dates: start: 19961020, end: 20080520
  2. LEVOTHYROX [Concomitant]
     Dosage: UNK
  3. DEPAKENE [Concomitant]
     Dosage: UNK
  4. ETIDRONIC ACID [Concomitant]
     Dosage: UNK

REACTIONS (2)
  - BRAIN INJURY [None]
  - SEPSIS [None]
